FAERS Safety Report 20688374 (Version 1)
Quarter: 2022Q2

REPORT INFORMATION
  Report Type: Spontaneous
  Country: IN (occurrence: IN)
  Receive Date: 20220408
  Receipt Date: 20220408
  Transmission Date: 20220721
  Serious: Yes (Hospitalization, Other)
  Sender: FDA-Public Use
  Company Number: IN-MACLEODS PHARMACEUTICALS US LTD-MAC2022035121

PATIENT

DRUGS (5)
  1. OLANZAPINE [Suspect]
     Active Substance: OLANZAPINE
     Indication: Schizophrenia
     Dosage: 10 MILLIGRAM, QD
     Route: 065
  2. OLANZAPINE [Suspect]
     Active Substance: OLANZAPINE
     Dosage: 5 MILLIGRAM, QD
     Route: 065
  3. TRIFLUOPERAZINE [Concomitant]
     Active Substance: TRIFLUOPERAZINE HYDROCHLORIDE
     Indication: Schizophrenia
     Dosage: 20 MILLIGRAM, QD
     Route: 065
  4. TRIFLUOPERAZINE [Concomitant]
     Active Substance: TRIFLUOPERAZINE HYDROCHLORIDE
     Dosage: 5 MILLIGRAM, QD
     Route: 065
  5. TRIHEXYPHENIDYL [Concomitant]
     Active Substance: TRIHEXYPHENIDYL
     Indication: Schizophrenia
     Dosage: 2 MILLIGRAM, QD, 1 TAB DAILY
     Route: 065

REACTIONS (2)
  - Oligohydramnios [Unknown]
  - Maternal exposure during pregnancy [Unknown]
